FAERS Safety Report 8608394-8 (Version None)
Quarter: 2012Q3

REPORT INFORMATION
  Report Type: 
  Country: None (occurrence: None)
  Receive Date: 20120821
  Receipt Date: 20120808
  Transmission Date: 20120928
  Serious: Yes (Hospitalization, Other)
  Sender: FDA-Public Use
  Company Number: US-ELI_LILLY_AND_COMPANY-US201208003357

PATIENT
  Sex: Male

DRUGS (4)
  1. CLOPIDEGREL [Concomitant]
     Dosage: 75 MG, UNKNOWN
  2. HUMALOG [Suspect]
     Indication: TYPE 2 DIABETES MELLITUS
     Dosage: UNK, PRN
     Dates: start: 20100101
  3. LEVEMIR [Concomitant]
  4. ASPIRIN [Concomitant]
     Dosage: 345 MG, QD

REACTIONS (5)
  - VISUAL IMPAIRMENT [None]
  - GLAUCOMA [None]
  - CATARACT [None]
  - MYOCARDIAL INFARCTION [None]
  - HEARING IMPAIRED [None]
